FAERS Safety Report 16217789 (Version 1)
Quarter: 2019Q2

REPORT INFORMATION
  Report Type: Report from Study
  Country: BR (occurrence: BR)
  Receive Date: 20190419
  Receipt Date: 20190419
  Transmission Date: 20190711
  Serious: Yes (Death, Other)
  Sender: FDA-Public Use
  Company Number: BR-TAKEDA-2018TUS031459

PATIENT
  Age: 47 Year
  Sex: Male

DRUGS (1)
  1. BRIGATINIB [Suspect]
     Active Substance: BRIGATINIB
     Indication: LUNG ADENOCARCINOMA
     Dosage: 90 MG, QD
     Route: 048
     Dates: start: 20181015

REACTIONS (3)
  - Neoplasm progression [Fatal]
  - Radiation necrosis [Not Recovered/Not Resolved]
  - Off label use [Unknown]

NARRATIVE: CASE EVENT DATE: 20190410
